FAERS Safety Report 22653501 (Version 1)
Quarter: 2023Q2

REPORT INFORMATION
  Report Type: Spontaneous
  Country: US (occurrence: None)
  Receive Date: 20230627
  Receipt Date: 20230627
  Transmission Date: 20230721
  Serious: Yes (Other)
  Sender: FDA-Public Use
  Company Number: None

PATIENT
  Sex: Male

DRUGS (2)
  1. XOLAIR [Suspect]
     Active Substance: OMALIZUMAB
     Indication: Asthma
     Dosage: FREQUENCY : EVERY OTHER WEEK;?
     Route: 058
  2. XOLAIR [Suspect]
     Active Substance: OMALIZUMAB
     Dosage: FREQUENCY : EVERY OTHER WEEK;?
     Route: 058

REACTIONS (4)
  - Road traffic accident [None]
  - Asthma [None]
  - Impaired quality of life [None]
  - Therapy interrupted [None]
